FAERS Safety Report 18030840 (Version 1)
Quarter: 2020Q3

REPORT INFORMATION
  Report Type: Spontaneous
  Country: US (occurrence: US)
  Receive Date: 20200715
  Receipt Date: 20200715
  Transmission Date: 20201103
  Serious: Yes (Hospitalization)
  Sender: FDA-Public Use
  Company Number: None

PATIENT
  Age: 75 Year
  Sex: Male
  Weight: 75.1 kg

DRUGS (3)
  1. CISPLATIN (119875) [Suspect]
     Active Substance: CISPLATIN
     Dates: end: 20190517
  2. GEMCITABINE HYDROCHLORIDE. [Suspect]
     Active Substance: GEMCITABINE HYDROCHLORIDE
     Dates: end: 20190516
  3. NEULASTA [Suspect]
     Active Substance: PEGFILGRASTIM
     Dates: end: 20190517

REACTIONS (9)
  - Hypertension [None]
  - Pyelonephritis [None]
  - Atrial fibrillation [None]
  - Escherichia urinary tract infection [None]
  - Abdominal pain [None]
  - Electrocardiogram T wave inversion [None]
  - Klebsiella test positive [None]
  - Blood culture positive [None]
  - Chest pain [None]

NARRATIVE: CASE EVENT DATE: 20190616
